FAERS Safety Report 10085923 (Version 1)
Quarter: 2014Q2

REPORT INFORMATION
  Report Type: Spontaneous
  Country: US (occurrence: US)
  Receive Date: 20140418
  Receipt Date: 20140418
  Transmission Date: 20141212
  Serious: No
  Sender: FDA-Public Use
  Company Number: US-BAYER-2014-057612

PATIENT
  Age: 91 Year
  Sex: Female
  Weight: 63 kg

DRUGS (2)
  1. ALEVE TABLET [Suspect]
     Indication: ARTHRITIS
     Dosage: UNK
     Route: 048
  2. SYNTHROID [Concomitant]
     Dosage: UNK

REACTIONS (1)
  - Drug ineffective [None]
